FAERS Safety Report 16857891 (Version 5)
Quarter: 2020Q1

REPORT INFORMATION
  Report Type: Report from Study
  Country: IE (occurrence: IE)
  Receive Date: 20190926
  Receipt Date: 20200213
  Transmission Date: 20200409
  Serious: Yes (Other)
  Sender: FDA-Public Use
  Company Number: IE-JNJFOC-20190824174

PATIENT
  Age: 21 Year
  Sex: Female

DRUGS (2)
  1. STELARA [Suspect]
     Active Substance: USTEKINUMAB
     Indication: PSORIASIS
     Dosage: LAST APPLICATION DATE: 16-MAY-2019
     Route: 058
     Dates: start: 20190418
  2. STELARA [Suspect]
     Active Substance: USTEKINUMAB
     Route: 058
     Dates: start: 20190819

REACTIONS (9)
  - Blood pressure increased [Unknown]
  - Urinary tract infection [Unknown]
  - Anxiety [Not Recovered/Not Resolved]
  - Kidney infection [Recovering/Resolving]
  - Cystitis [Recovered/Resolved]
  - Vulvovaginal candidiasis [Recovered/Resolved]
  - Obsessive-compulsive disorder [Unknown]
  - Lower respiratory tract infection [Recovering/Resolving]
  - Sinusitis [Unknown]

NARRATIVE: CASE EVENT DATE: 20190805
